FAERS Safety Report 9834587 (Version 3)
Quarter: 2014Q2

REPORT INFORMATION
  Report Type: Spontaneous
  Country: JP (occurrence: JP)
  Receive Date: 20140122
  Receipt Date: 20140424
  Transmission Date: 20141212
  Serious: No
  Sender: FDA-Public Use
  Company Number: JP-PFIZER INC-2014016163

PATIENT
  Age: 70 Year
  Sex: Male

DRUGS (2)
  1. SUTENT [Suspect]
     Indication: GASTROINTESTINAL STROMAL TUMOUR
     Dosage: 37.5 MG, DAILY
     Route: 048
  2. SUTENT [Suspect]
     Dosage: 25 MG, 1X/DAY
     Route: 048
     Dates: end: 201311

REACTIONS (6)
  - Thyroid function test abnormal [Not Recovered/Not Resolved]
  - Blood creatine phosphokinase increased [Not Recovered/Not Resolved]
  - Myalgia [Unknown]
  - Bone pain [Unknown]
  - Disease progression [Unknown]
  - Gastrointestinal stromal tumour [Unknown]
